FAERS Safety Report 17571879 (Version 1)
Quarter: 2020Q1

REPORT INFORMATION
  Report Type: Report from Study
  Country: FI (occurrence: FI)
  Receive Date: 20200323
  Receipt Date: 20200323
  Transmission Date: 20200409
  Serious: Yes (Hospitalization)
  Sender: FDA-Public Use
  Company Number: FI-MYLANLABS-2020M1024160

PATIENT
  Age: 65 Year
  Sex: Male

DRUGS (7)
  1. LEPONEX [Suspect]
     Active Substance: CLOZAPINE
     Indication: MANIA
  2. OLANZAPINE. [Suspect]
     Active Substance: OLANZAPINE
     Indication: PSYCHOTHERAPY
     Dosage: 20 MILLIGRAM, IN THE EVENINGS
  3. LEPONEX [Suspect]
     Active Substance: CLOZAPINE
     Indication: SLEEP DISORDER
  4. VALPROATE [Suspect]
     Active Substance: VALPROIC ACID
     Indication: PSYCHOTHERAPY
     Dosage: THERAPEUTIC DOSES
  5. LEPONEX [Suspect]
     Active Substance: CLOZAPINE
     Indication: BIPOLAR DISORDER
     Dosage: UNK
  6. LEPONEX [Suspect]
     Active Substance: CLOZAPINE
     Indication: DELIRIUM
     Dosage: UNK
     Dates: start: 20200129
  7. LITHIUM. [Suspect]
     Active Substance: LITHIUM
     Indication: PSYCHOTHERAPY
     Dosage: THERAPEUTIC DOSES

REACTIONS (7)
  - Hospitalisation [Unknown]
  - Pulmonary pain [Unknown]
  - Diarrhoea [Recovered/Resolved]
  - Off label use [Unknown]
  - Eosinophilia [Recovered/Resolved]
  - Myalgia [Unknown]
  - White blood cell count increased [Unknown]

NARRATIVE: CASE EVENT DATE: 202002
